FAERS Safety Report 7037101-8 (Version None)
Quarter: 2010Q4

REPORT INFORMATION
  Report Type: 
  Country: None (occurrence: None)
  Receive Date: 20101011
  Receipt Date: 20101005
  Transmission Date: 20110411
  Serious: Yes (Death)
  Sender: FDA-Public Use
  Company Number: PHHY2010US55631

PATIENT
  Sex: Female

DRUGS (1)
  1. EXJADE [Suspect]
     Indication: BREAST CANCER FEMALE
     Dosage: 1000 MG, QD
     Route: 048

REACTIONS (3)
  - BREAST CANCER METASTATIC [None]
  - DRUG INEFFECTIVE [None]
  - OFF LABEL USE [None]
